FAERS Safety Report 10672140 (Version 3)
Quarter: 2015Q1

REPORT INFORMATION
  Report Type: Spontaneous
  Country: BR (occurrence: BR)
  Receive Date: 20141223
  Receipt Date: 20150108
  Transmission Date: 20150720
  Serious: Yes (Other)
  Sender: FDA-Public Use
  Company Number: BR-SA-2014SA173932

PATIENT
  Age: 68 Year
  Sex: Female
  Weight: 64 kg

DRUGS (10)
  1. LAMOTRIGINE. [Concomitant]
     Active Substance: LAMOTRIGINE
     Indication: EPILEPSY
  2. SIMVASTATIN. [Concomitant]
     Active Substance: SIMVASTATIN
     Indication: BLOOD CHOLESTEROL
  3. CLOPIDOGREL [Concomitant]
     Active Substance: CLOPIDOGREL BISULFATE
  4. LASIX [Concomitant]
     Active Substance: FUROSEMIDE
  5. LANTUS [Suspect]
     Active Substance: INSULIN GLARGINE
     Indication: TYPE 2 DIABETES MELLITUS
     Route: 065
     Dates: start: 1998
  6. ESCITALOPRAM [Concomitant]
     Active Substance: ESCITALOPRAM OXALATE
     Indication: ANTIDEPRESSANT THERAPY
  7. SOMALGIN CARDIO [Concomitant]
     Active Substance: ASPIRIN\DIHYDROXYALUMINUM AMINOACETATE ANHYDROUS\MAGNESIUM CARBONATE
  8. AUTOPEN 24 [Concomitant]
     Active Substance: DEVICE
     Indication: DEVICE THERAPY
  9. MIRTAZAPINE. [Concomitant]
     Active Substance: MIRTAZAPINE
     Indication: SEDATIVE THERAPY
  10. DONEPEZIL HYDROCHLORIDE. [Concomitant]
     Active Substance: DONEPEZIL HYDROCHLORIDE
     Indication: DEMENTIA ALZHEIMER^S TYPE

REACTIONS (10)
  - Blood pressure abnormal [Recovered/Resolved]
  - Fall [Unknown]
  - Diabetic neuropathy [Recovered/Resolved]
  - Chronic kidney disease [Not Recovered/Not Resolved]
  - Dementia Alzheimer^s type [Recovering/Resolving]
  - Muscle spasms [Recovering/Resolving]
  - Swelling [Recovering/Resolving]
  - Burning sensation [Recovered/Resolved]
  - Dizziness [Recovered/Resolved]
  - Angioplasty [Unknown]

NARRATIVE: CASE EVENT DATE: 2005
